FAERS Safety Report 9675094 (Version 1)
Quarter: 2013Q4

REPORT INFORMATION
  Report Type: Spontaneous
  Country: US (occurrence: None)
  Receive Date: 20131106
  Receipt Date: 20131106
  Transmission Date: 20140711
  Serious: Yes (Other)
  Sender: FDA-Public Use
  Company Number: None

PATIENT
  Age: 57 Year
  Sex: Female
  Weight: 77.11 kg

DRUGS (16)
  1. MONTELUKAST SODIUM [Suspect]
     Indication: ASTHMA
     Route: 048
     Dates: start: 20130615
  2. MONTELUKAST SODIUM [Suspect]
     Indication: MULTIPLE ALLERGIES
     Route: 048
     Dates: start: 20130615
  3. AMLODIPINE [Concomitant]
  4. GLIPIZIDE XL [Concomitant]
  5. BYSTOLIC [Concomitant]
  6. ALLEGRA-D [Concomitant]
  7. OMEPRAZOLE [Concomitant]
  8. METFORMIN [Concomitant]
  9. LOVASTATIN [Concomitant]
  10. MULTIVITAMIN [Concomitant]
  11. CALCIUM [Concomitant]
  12. COQ10 [Concomitant]
  13. KRILL OIL [Concomitant]
  14. ASPIRIN [Concomitant]
  15. VIT A [Concomitant]
  16. VIT D3 [Concomitant]

REACTIONS (4)
  - Cough [None]
  - Product substitution issue [None]
  - Therapeutic response unexpected with drug substitution [None]
  - Asthma [None]
